FAERS Safety Report 9275483 (Version 2)
Quarter: 2013Q2

REPORT INFORMATION
  Report Type: Spontaneous
  Country: US (occurrence: US)
  Receive Date: 20130507
  Receipt Date: 20130628
  Transmission Date: 20140414
  Serious: No
  Sender: FDA-Public Use
  Company Number: US-PFIZER INC-2013137573

PATIENT
  Age: 70 Year
  Sex: Male
  Weight: 95.24 kg

DRUGS (2)
  1. NITROSTAT [Suspect]
     Indication: CHEST PAIN
     Dosage: 0.4 MG, AS NEEDED
     Route: 060
     Dates: start: 20130130, end: 201301
  2. NITROSTAT [Suspect]
     Indication: MYOCARDIAL INFARCTION

REACTIONS (1)
  - Glossodynia [Unknown]
